FAERS Safety Report 24393083 (Version 2)
Quarter: 2025Q3

REPORT INFORMATION
  Report Type: Spontaneous
  Country: CN (occurrence: None)
  Receive Date: 20241003
  Receipt Date: 20250809
  Transmission Date: 20251021
  Serious: Yes (Hospitalization, Disabling, Other)
  Sender: ALEXION PHARMACEUTICALS
  Company Number: CN-ASTRAZENECA-202409CHN008121CN

PATIENT
  Age: 68 Year
  Sex: Female
  Weight: 62 kg

DRUGS (4)
  1. TAGRISSO [Suspect]
     Active Substance: OSIMERTINIB
     Indication: Non-small cell lung cancer metastatic
  2. ICOTINIB [Suspect]
     Active Substance: ICOTINIB
     Indication: Non-small cell lung cancer metastatic
  3. RAFUTROMBOPAG OLAMINE [Concomitant]
     Active Substance: RAFUTROMBOPAG OLAMINE
  4. FIRMONERTINIB MESYLATE [Concomitant]
     Active Substance: FIRMONERTINIB MESYLATE

REACTIONS (3)
  - Platelet count decreased [Unknown]
  - Malignant neoplasm progression [Unknown]
  - Metastases to central nervous system [Unknown]

NARRATIVE: CASE EVENT DATE: 20240816
